FAERS Safety Report 15459205 (Version 1)
Quarter: 2018Q4

REPORT INFORMATION
  Report Type: Spontaneous
  Country: US (occurrence: US)
  Receive Date: 20181003
  Receipt Date: 20181003
  Transmission Date: 20190204
  Serious: Yes (Other)
  Sender: FDA-Public Use
  Company Number: US-PFIZER INC-2018396335

PATIENT
  Age: 68 Year
  Sex: Male
  Weight: 127 kg

DRUGS (3)
  1. ADVIL [Suspect]
     Active Substance: IBUPROFEN
     Indication: FIBROMYALGIA
     Dosage: UNK
     Route: 048
  2. EXCEDRIN [Suspect]
     Active Substance: ACETAMINOPHEN\ASPIRIN\CAFFEINE
     Indication: FIBROMYALGIA
     Dosage: UNK
     Route: 048
  3. ASPIRIN. [Suspect]
     Active Substance: ASPIRIN
     Indication: FIBROMYALGIA
     Dosage: UNK
     Route: 048

REACTIONS (4)
  - Condition aggravated [Not Recovered/Not Resolved]
  - Oesophageal ulcer [Unknown]
  - Drug effect incomplete [Not Recovered/Not Resolved]
  - Abdominal pain upper [Not Recovered/Not Resolved]

NARRATIVE: CASE EVENT DATE: 201804
